FAERS Safety Report 25076982 (Version 1)
Quarter: 2025Q1

REPORT INFORMATION
  Report Type: Spontaneous
  Country: US (occurrence: US)
  Receive Date: 20250314
  Receipt Date: 20250314
  Transmission Date: 20250409
  Serious: Yes (Other)
  Sender: ROCHE
  Company Number: US-ROCHE-10000227442

PATIENT
  Sex: Female

DRUGS (2)
  1. XOLAIR PFS [Suspect]
     Active Substance: OMALIZUMAB
     Indication: Idiopathic urticaria
     Dosage: 300 MG/ 2 ML
     Route: 058
     Dates: start: 202305
  2. XOLAIR PFS [Suspect]
     Active Substance: OMALIZUMAB

REACTIONS (5)
  - Breast cancer [Unknown]
  - Stress [Unknown]
  - Urticaria [Unknown]
  - Furuncle [Unknown]
  - Off label use [Unknown]
